FAERS Safety Report 9120109 (Version 1)
Quarter: 2013Q1

REPORT INFORMATION
  Report Type: Spontaneous
  Country: US (occurrence: US)
  Receive Date: 20130226
  Receipt Date: 20130226
  Transmission Date: 20140127
  Serious: No
  Sender: FDA-Public Use
  Company Number: US-009507513-1302USA011237

PATIENT
  Age: 42 Year
  Sex: Female
  Weight: 56.24 kg

DRUGS (3)
  1. PEGINTRON [Suspect]
     Dosage: 50 MICROGRAM, QW
     Route: 058
  2. RIBAVIRIN [Suspect]
     Dosage: 200 MG
  3. NEXIUM [Concomitant]

REACTIONS (4)
  - Nausea [Unknown]
  - Abdominal pain [Unknown]
  - Diarrhoea [Unknown]
  - White blood cell count decreased [Unknown]
